FAERS Safety Report 7774344-X (Version None)
Quarter: 2011Q3

REPORT INFORMATION
  Report Type: 
  Country: None (occurrence: None)
  Receive Date: 20110923
  Receipt Date: 20110913
  Transmission Date: 20111222
  Serious: Yes (Hospitalization, Other)
  Sender: FDA-Public Use
  Company Number: PHFR2011GB02803

PATIENT
  Sex: Female

DRUGS (4)
  1. VENLAFAXINE HYDROCHLORIDE [Concomitant]
     Indication: AFFECTIVE DISORDER
     Dosage: 150 MG, UNK
     Dates: start: 20100101
  2. CLOZAPINE [Suspect]
     Dosage: UNK
  3. FERROUS SULFATE TAB [Concomitant]
     Indication: IRON DEFICIENCY
     Dosage: 630 MG, UNK
     Route: 048
  4. CLOZAPINE [Suspect]
     Indication: SCHIZOPHRENIA
     Dosage: UNK
     Route: 048
     Dates: start: 20110314

REACTIONS (8)
  - ASTHENIA [None]
  - GLOMERULAR FILTRATION RATE DECREASED [None]
  - DIABETES MELLITUS [None]
  - BLOOD CREATININE INCREASED [None]
  - BLOOD SODIUM DECREASED [None]
  - FATIGUE [None]
  - DYSPNOEA [None]
  - RENAL FAILURE [None]
